FAERS Safety Report 21084792 (Version 1)
Quarter: 2022Q3

REPORT INFORMATION
  Report Type: Spontaneous
  Country: PT (occurrence: PT)
  Receive Date: 20220714
  Receipt Date: 20220714
  Transmission Date: 20221027
  Serious: Yes (Other)
  Sender: FDA-Public Use
  Company Number: None

PATIENT
  Age: 77 Year
  Sex: Male
  Weight: 80 kg

DRUGS (15)
  1. VELTASSA [Suspect]
     Active Substance: PATIROMER
     Indication: Hyperkalaemia
     Dosage: 1 X DIA
     Route: 048
     Dates: start: 20210817, end: 20211220
  2. MAGNORAL [Concomitant]
  3. ENTRESTO [Concomitant]
     Active Substance: SACUBITRIL\VALSARTAN
  4. LINAGLIPTIN [Concomitant]
     Active Substance: LINAGLIPTIN
  5. ELIQUIS [Concomitant]
     Active Substance: APIXABAN
  6. FINASTERIDA [Concomitant]
  7. LATANOPROST [Concomitant]
     Active Substance: LATANOPROST
  8. PRAVASTATIN SODIUM [Concomitant]
     Active Substance: PRAVASTATIN SODIUM
  9. BISOPROLOL [Concomitant]
     Active Substance: BISOPROLOL
  10. FUROSEMIDE [Concomitant]
     Active Substance: FUROSEMIDE
  11. TANSULOSINA [Concomitant]
  12. PANTOPRAZOLE SODIUM [Concomitant]
     Active Substance: PANTOPRAZOLE SODIUM
  13. DAPAGLIFLOZIN [Concomitant]
     Active Substance: DAPAGLIFLOZIN
  14. TRELEGY ELLIPTA [Concomitant]
     Active Substance: FLUTICASONE FUROATE\UMECLIDINIUM BROMIDE\VILANTEROL TRIFENATATE
  15. SPIRONOLACTONE [Concomitant]
     Active Substance: SPIRONOLACTONE

REACTIONS (1)
  - Metabolic acidosis [Unknown]

NARRATIVE: CASE EVENT DATE: 20211220
